FAERS Safety Report 8128581-5 (Version None)
Quarter: 2012Q1

REPORT INFORMATION
  Report Type: 
  Country: None (occurrence: None)
  Receive Date: 20120210
  Receipt Date: 20111209
  Transmission Date: 20120608
  Serious: No
  Sender: FDA-Public Use
  Company Number: US-BRISTOL-MYERS SQUIBB COMPANY-16281537

PATIENT
  Sex: Female

DRUGS (1)
  1. ORENCIA [Suspect]
     Dosage: STARD DEC 2010 OR JAN 2011,CAME OFF FOR TWO MONTHS ,LAST INFUSION POSSIBLY ON 7TH OR 14TH OF NOV
     Route: 042

REACTIONS (3)
  - DYSPNOEA [None]
  - LUNG DISORDER [None]
  - FATIGUE [None]
